FAERS Safety Report 5479706-1 (Version None)
Quarter: 2007Q3

REPORT INFORMATION
  Report Type: 
  Country: None (occurrence: None)
  Receive Date: 20070913
  Receipt Date: 20070206
  Transmission Date: 20080115
  Serious: Yes (Other)
  Sender: FDA-Public Use
  Company Number: 2007-PI042

PATIENT
  Age: 42 Year
  Sex: Female

DRUGS (1)
  1. CHLORAPREP WITH TINT [Suspect]
     Indication: PREOPERATIVE CARE
     Dosage: 10.5 ML, ONCE, TOPICAL
     Route: 061
     Dates: start: 20070126

REACTIONS (1)
  - SKIN IRRITATION [None]
